FAERS Safety Report 10075515 (Version 1)
Quarter: 2014Q2

REPORT INFORMATION
  Report Type: Spontaneous
  Country: MA (occurrence: MA)
  Receive Date: 20140414
  Receipt Date: 20140414
  Transmission Date: 20141212
  Serious: Yes (Other)
  Sender: FDA-Public Use
  Company Number: MA-ROCHE-1381227

PATIENT
  Age: 58 Year
  Sex: Female

DRUGS (2)
  1. MABTHERA [Suspect]
     Indication: LYMPHOMA
     Route: 042
     Dates: start: 201303
  2. VINCRISTINE [Suspect]
     Indication: LYMPHOMA
     Route: 065

REACTIONS (2)
  - Blindness transient [Recovered/Resolved]
  - Respiratory distress [Recovered/Resolved]
